FAERS Safety Report 8838562 (Version 3)
Quarter: 2013Q3

REPORT INFORMATION
  Report Type: Report from Study
  Country: DE (occurrence: DE)
  Receive Date: 20121012
  Receipt Date: 20130715
  Transmission Date: 20140515
  Serious: Yes (Hospitalization)
  Sender: FDA-Public Use
  Company Number: DE-ROCHE-1141775

PATIENT
  Age: 26 Year
  Sex: Female
  Weight: 53 kg

DRUGS (2)
  1. RITUXIMAB [Suspect]
     Indication: MALIGNANT LYMPHOID NEOPLASM
     Dosage: LAST DOSE PRIOR TO SAE 15/MAY/2012
     Route: 042
     Dates: start: 20110822
  2. BENDAMUSTINE [Suspect]
     Indication: MALIGNANT LYMPHOID NEOPLASM
     Dosage: LAT DOSE PRIOR TO SAE 25/JAN/2012
     Route: 042
     Dates: start: 20110823

REACTIONS (2)
  - Abortion spontaneous [Recovered/Resolved]
  - Exposure during pregnancy [Unknown]
